FAERS Safety Report 8438793 (Version 2)
Quarter: 2014Q1

REPORT INFORMATION
  Report Type: Spontaneous
  Country: US (occurrence: US)
  Receive Date: 20120302
  Receipt Date: 20140312
  Transmission Date: 20141002
  Serious: No
  Sender: FDA-Public Use
  Company Number: US-PFIZER INC-2012051255

PATIENT
  Sex: Male

DRUGS (2)
  1. ATIVAN [Suspect]
     Dosage: 0.5 MG 1/2 - 1 DAILY
  2. ZANTAC [Suspect]
     Dosage: 150MG BID

REACTIONS (1)
  - Drug hypersensitivity [Unknown]
